FAERS Safety Report 20982783 (Version 2)
Quarter: 2023Q1

REPORT INFORMATION
  Report Type: Spontaneous
  Country: US (occurrence: US)
  Receive Date: 20220620
  Receipt Date: 20230113
  Transmission Date: 20230418
  Serious: No
  Sender: FDA-Public Use
  Company Number: US-NOVOPROD-920477

PATIENT
  Age: 25 Year
  Sex: Female

DRUGS (1)
  1. WEGOVY [Suspect]
     Active Substance: SEMAGLUTIDE
     Indication: Product used for unknown indication
     Dosage: 1.7 MG, QW
     Route: 058
     Dates: start: 202112

REACTIONS (3)
  - Hunger [Not Recovered/Not Resolved]
  - Nausea [Recovered/Resolved]
  - Injection site discharge [Unknown]

NARRATIVE: CASE EVENT DATE: 20211201
